FAERS Safety Report 12354291 (Version 1)
Quarter: 2016Q2

REPORT INFORMATION
  Report Type: Spontaneous
  Country: NL (occurrence: NL)
  Receive Date: 20160511
  Receipt Date: 20160511
  Transmission Date: 20160815
  Serious: Yes (Hospitalization)
  Sender: FDA-Public Use
  Company Number: NL-009507513-1605NLD004380

PATIENT
  Age: 63 Year
  Sex: Female

DRUGS (2)
  1. SYNAPAUSE-E3 [Suspect]
     Active Substance: ESTRADIOL
     Indication: VAGINAL ULCERATION
     Dosage: 0.5 MG, QD
     Route: 067
     Dates: start: 20151204
  2. SYNAPAUSE-E3 [Suspect]
     Active Substance: ESTRADIOL
     Dosage: 0.5 MG, BIW
     Route: 067
     Dates: end: 20160418

REACTIONS (1)
  - Breast cancer [Unknown]

NARRATIVE: CASE EVENT DATE: 20160401
